FAERS Safety Report 13956735 (Version 1)
Quarter: 2017Q3

REPORT INFORMATION
  Report Type: Spontaneous
  Country: US (occurrence: US)
  Receive Date: 20170912
  Receipt Date: 20170912
  Transmission Date: 20171128
  Serious: Yes (Death)
  Sender: FDA-Public Use
  Company Number: US-INSYS THERAPEUTICS, INC-INS201708-000536

PATIENT
  Age: 66 Year
  Sex: Female

DRUGS (11)
  1. SUBSYS [Suspect]
     Active Substance: FENTANYL
     Indication: PRODUCT USED FOR UNKNOWN INDICATION
     Route: 060
  2. FUROSEMIDE [Concomitant]
  3. NORTRIPTYLINE [Concomitant]
     Active Substance: NORTRIPTYLINE
  4. DICLOFENAC [Concomitant]
     Active Substance: DICLOFENAC
  5. TOPAMAX [Concomitant]
  6. OXYCODONE [Concomitant]
     Active Substance: OXYCODONE
  7. HYDROCORTISONE [Concomitant]
  8. MORPHINE SULFATE [Concomitant]
  9. CLONAZEPAM [Concomitant]
  10. DEPAKOTE ER [Concomitant]
     Active Substance: DIVALPROEX SODIUM
  11. DILAUDID [Concomitant]

REACTIONS (1)
  - Neoplasm progression [Fatal]

NARRATIVE: CASE EVENT DATE: 20151004
